FAERS Safety Report 9641591 (Version 2)
Quarter: 2013Q4

REPORT INFORMATION
  Report Type: Spontaneous
  Country: US (occurrence: US)
  Receive Date: 20131023
  Receipt Date: 20131202
  Transmission Date: 20140711
  Serious: Yes (Life-Threatening)
  Sender: FDA-Public Use
  Company Number: US-GLAXOSMITHKLINE-A1046126A

PATIENT
  Age: 67 Year
  Sex: Male

DRUGS (2)
  1. VOTRIENT [Suspect]
     Indication: NEOPLASM MALIGNANT
     Dosage: 800MG PER DAY
     Route: 048
     Dates: start: 20130425, end: 201308
  2. NO CONCURRENT MEDICATION [Concomitant]

REACTIONS (1)
  - Disease progression [Unknown]
